FAERS Safety Report 10782703 (Version 6)
Quarter: 2016Q3

REPORT INFORMATION
  Report Type: Spontaneous
  Country: US (occurrence: US)
  Receive Date: 20150210
  Receipt Date: 20160909
  Transmission Date: 20161109
  Serious: Yes (Hospitalization, Other)
  Sender: FDA-Public Use
  Company Number: US-GLAXOSMITHKLINE-A1076503A

PATIENT
  Age: 60 Year
  Sex: Female

DRUGS (5)
  1. LEVOTHYROXINE. [Concomitant]
     Active Substance: LEVOTHYROXINE
  2. ACYCLOVIR. [Concomitant]
     Active Substance: ACYCLOVIR
  3. LAMICTAL XR [Suspect]
     Active Substance: LAMOTRIGINE
     Dosage: 250 MG, 1D
     Dates: start: 2006
  4. HUMAN GROWTH HORMONE [Concomitant]
  5. LAMICTAL XR [Suspect]
     Active Substance: LAMOTRIGINE
     Indication: EPILEPSY
     Dosage: 200 MG, U
     Route: 065
     Dates: start: 20101026

REACTIONS (6)
  - Sleep apnoea syndrome [Recovering/Resolving]
  - Influenza [Unknown]
  - Lower respiratory tract infection viral [Recovering/Resolving]
  - Chronic obstructive pulmonary disease [Recovering/Resolving]
  - Epilepsy [Unknown]
  - Ankle fracture [Unknown]

NARRATIVE: CASE EVENT DATE: 201603
